FAERS Safety Report 16449321 (Version 2)
Quarter: 2019Q3

REPORT INFORMATION
  Report Type: Spontaneous
  Country: US (occurrence: US)
  Receive Date: 20190619
  Receipt Date: 20190725
  Transmission Date: 20191004
  Serious: Yes (Death)
  Sender: FDA-Public Use
  Company Number: US-TEVA-2019-US-1061878

PATIENT
  Sex: Male

DRUGS (8)
  1. LYRICA [Concomitant]
     Active Substance: PREGABALIN
  2. VERAPAMIL [Concomitant]
     Active Substance: VERAPAMIL HYDROCHLORIDE
  3. EVZIO [Concomitant]
     Active Substance: NALOXONE HYDROCHLORIDE
  4. ACTIQ [Concomitant]
     Active Substance: FENTANYL CITRATE
  5. FENTANYL CITRATE. [Suspect]
     Active Substance: FENTANYL CITRATE
     Route: 048
  6. VALIUM [Concomitant]
     Active Substance: DIAZEPAM
  7. BACLOFEN. [Concomitant]
     Active Substance: BACLOFEN
  8. MS CONTIN [Concomitant]
     Active Substance: MORPHINE SULFATE

REACTIONS (1)
  - Death [Fatal]
